FAERS Safety Report 10249575 (Version 1)
Quarter: 2014Q2

REPORT INFORMATION
  Report Type: Spontaneous
  Country: US (occurrence: US)
  Receive Date: 20140620
  Receipt Date: 20140620
  Transmission Date: 20141212
  Serious: No
  Sender: FDA-Public Use
  Company Number: US-PFIZER INC-2014168014

PATIENT
  Age: 46 Year
  Sex: Female
  Weight: 65.76 kg

DRUGS (5)
  1. PRISTIQ [Suspect]
     Indication: DEPRESSION
     Dosage: 100 MG, 1X/DAY
     Route: 048
     Dates: start: 2011
  2. PRISTIQ [Suspect]
     Dosage: 50 MG, 1X/DAY
     Route: 048
     Dates: start: 20140601
  3. HYDROCHLOROTHIAZIDE/LISINOPRIL [Suspect]
     Indication: HYPERTENSION
     Dosage: UNK
  4. EVISTA [Concomitant]
     Dosage: UNK
  5. ASPIRIN [Concomitant]
     Dosage: UNK, 1X/DAY

REACTIONS (6)
  - Hypertension [Unknown]
  - Blood potassium decreased [Unknown]
  - Activities of daily living impaired [Unknown]
  - Diarrhoea [Unknown]
  - Anxiety [Unknown]
  - Headache [Unknown]
